FAERS Safety Report 6561578-5 (Version None)
Quarter: 2010Q1

REPORT INFORMATION
  Report Type: 
  Country: None (occurrence: None)
  Receive Date: 20100130
  Receipt Date: 20091022
  Transmission Date: 20100710
  Serious: Yes (Other)
  Sender: FDA-Public Use
  Company Number: US-ABBOTT-09P-163-0604324-00

PATIENT
  Sex: Female
  Weight: 63.56 kg

DRUGS (4)
  1. HUMIRA [Suspect]
     Indication: RHEUMATOID ARTHRITIS
     Route: 058
     Dates: start: 20040101
  2. BENICAR [Concomitant]
     Indication: HYPERTENSION
  3. RESTASIS [Concomitant]
     Indication: KERATOCONJUNCTIVITIS SICCA
  4. METHOTREXATE [Concomitant]
     Indication: RHEUMATOID ARTHRITIS

REACTIONS (4)
  - COUGH [None]
  - FOOT FRACTURE [None]
  - HERPES ZOSTER [None]
  - NASOPHARYNGITIS [None]
